FAERS Safety Report 8864689 (Version 1)
Quarter: 2012Q4

REPORT INFORMATION
  Report Type: 
  Country: US (occurrence: US)
  Receive Date: 20121024
  Receipt Date: 20121024
  Transmission Date: 20130627
  Serious: No
  Sender: FDA-Public Use
  Company Number: US-AMGEN-USASP2011068760

PATIENT
  Age: 46 Year
  Sex: Female

DRUGS (1)
  1. ENBREL [Suspect]
     Indication: RHEUMATOID ARTHRITIS
     Dosage: 50 mg, qwk
     Dates: start: 20110630

REACTIONS (5)
  - Erythema of eyelid [Unknown]
  - Eyelid oedema [Unknown]
  - Eyelids pruritus [Unknown]
  - Medication error [Unknown]
  - Injection site extravasation [Unknown]
